FAERS Safety Report 7501046-7 (Version None)
Quarter: 2011Q2

REPORT INFORMATION
  Report Type: 
  Country: None (occurrence: None)
  Receive Date: 20110524
  Receipt Date: 20100602
  Transmission Date: 20111010
  Serious: No
  Sender: FDA-Public Use
  Company Number: US-NOVEN-ALL1-2010-03614

PATIENT

DRUGS (5)
  1. MELATONIN [Concomitant]
     Dosage: 3 MG, 1X/DAY:QD
     Route: 048
     Dates: start: 20090101
  2. CLONIDINE [Concomitant]
     Dosage: .1 MG, 1X/DAY:QD
     Route: 048
  3. VISTARIL                           /00058402/ [Concomitant]
     Dosage: 75 MG, 1X/DAY:QD (THREE 25 MG. CAPSULES)
     Route: 048
     Dates: start: 20090101
  4. DAYTRANA [Suspect]
     Dosage: 30 MG, 1X/DAY:QD
     Route: 062
  5. HALOPERIDOL [Concomitant]
     Dosage: .5 MG, 1X/DAY:QD
     Route: 048
     Dates: start: 20090101

REACTIONS (3)
  - NO ADVERSE EVENT [None]
  - PRODUCT QUALITY ISSUE [None]
  - WRONG TECHNIQUE IN DRUG USAGE PROCESS [None]
